FAERS Safety Report 18611660 (Version 1)
Quarter: 2020Q4

REPORT INFORMATION
  Report Type: Spontaneous
  Country: US (occurrence: US)
  Receive Date: 20201026
  Receipt Date: 20201026
  Transmission Date: 20210114
  Serious: Yes (Death)
  Sender: FDA-Public Use
  Company Number: None

PATIENT

DRUGS (4)
  1. LOPINAVIR-RITONAVIR [Suspect]
     Active Substance: LOPINAVIR\RITONAVIR
  2. CORTICOSTEROIDS [Suspect]
     Active Substance: CORTICOSTEROID NOS
  3. HYDROXYCHLOROQUINE [Suspect]
     Active Substance: HYDROXYCHLOROQUINE
     Indication: COVID-19
     Dates: start: 2020
  4. TOCILIZUMAB. [Suspect]
     Active Substance: TOCILIZUMAB

REACTIONS (1)
  - Product use in unapproved indication [None]
